FAERS Safety Report 24319067 (Version 1)
Quarter: 2024Q3

REPORT INFORMATION
  Report Type: Spontaneous
  Country: CN (occurrence: CN)
  Receive Date: 20240913
  Receipt Date: 20240913
  Transmission Date: 20241016
  Serious: Yes (Hospitalization)
  Sender: ROCHE
  Company Number: CN-BoehringerIngelheim-2024-BI-051067

PATIENT
  Age: 30 Year
  Sex: Male
  Weight: 90.0 kg

DRUGS (2)
  1. ALTEPLASE [Suspect]
     Active Substance: ALTEPLASE
     Indication: Thrombolysis
     Route: 042
     Dates: start: 20240906, end: 20240906
  2. ALTEPLASE [Suspect]
     Active Substance: ALTEPLASE
     Indication: Cerebral infarction
     Route: 042
     Dates: start: 20240906, end: 20240906

REACTIONS (3)
  - Gingival bleeding [Recovering/Resolving]
  - Haematoma [Recovering/Resolving]
  - Lividity [Recovering/Resolving]

NARRATIVE: CASE EVENT DATE: 20240906
